FAERS Safety Report 7608956-0 (Version None)
Quarter: 2011Q3

REPORT INFORMATION
  Report Type: 
  Country: None (occurrence: None)
  Receive Date: 20110714
  Receipt Date: 20110708
  Transmission Date: 20111222
  Serious: Yes (Hospitalization)
  Sender: FDA-Public Use
  Company Number: JP-GLAXOSMITHKLINE-B0698735A

PATIENT
  Sex: Male
  Weight: 53 kg

DRUGS (25)
  1. FAMOTIDINE [Concomitant]
     Dosage: 20MG PER DAY
     Route: 042
     Dates: start: 20100209, end: 20100303
  2. FLUDARA [Suspect]
     Indication: STEM CELL TRANSPLANT
     Dosage: 50MGM2 PER DAY
     Route: 042
     Dates: start: 20100204, end: 20100208
  3. METHOTREXATE [Concomitant]
     Indication: IMMUNOSUPPRESSION
     Dosage: 10MG PER DAY
     Dates: start: 20100214, end: 20100214
  4. DIFLUCAN [Concomitant]
     Dosage: 200MG PER DAY
     Route: 048
     Dates: start: 20100209, end: 20100402
  5. THYMOGLOBULIN [Suspect]
     Indication: STEM CELL TRANSPLANT
     Dosage: 66MGM2 PER DAY
     Route: 042
     Dates: start: 20100210, end: 20100211
  6. SOLU-CORTEF [Concomitant]
     Indication: IMMUNOSUPPRESSION
     Dosage: 400MG PER DAY
     Dates: start: 20100204, end: 20100212
  7. FUNGUARD [Concomitant]
     Dosage: 150MG PER DAY
     Dates: start: 20100209, end: 20100331
  8. ROCEPHIN [Concomitant]
     Dosage: 4G PER DAY
     Route: 042
     Dates: start: 20100228, end: 20100301
  9. POLYMYXIN B SULFATE [Concomitant]
     Dosage: 3IU6 PER DAY
     Route: 048
     Dates: start: 20100209, end: 20100305
  10. ZOVIRAX [Concomitant]
     Dosage: 1000MG PER DAY
     Route: 048
     Dates: start: 20100209, end: 20100321
  11. METHOTREXATE [Concomitant]
     Dosage: 10MG PER DAY
     Dates: start: 20100218, end: 20100218
  12. TIENAM [Concomitant]
     Dosage: 29IUAX PER DAY
     Dates: start: 20100217, end: 20100222
  13. EPADEL [Concomitant]
     Indication: PROPHYLAXIS
     Dosage: 1800MG PER DAY
     Route: 048
     Dates: start: 20100209, end: 20100430
  14. GRAN [Concomitant]
     Dates: start: 20100213, end: 20100226
  15. TACROLIMUS [Concomitant]
     Route: 048
  16. VANCOMYCIN HYCHLORIDE [Concomitant]
     Dosage: 1.5G PER DAY
     Route: 048
     Dates: start: 20100209, end: 20100305
  17. FAMOTIDINE [Concomitant]
     Dosage: 20MG PER DAY
     Route: 048
     Dates: start: 20100304
  18. ALKERAN [Suspect]
     Indication: STEM CELL TRANSPLANT
     Dosage: 68.23MGM2 PER DAY
     Route: 042
     Dates: start: 20100209, end: 20100210
  19. METHYLPREDNISOLONE SODIUM SUCCINATE [Concomitant]
     Indication: IMMUNOSUPPRESSION
     Dosage: 125MG PER DAY
     Route: 042
     Dates: start: 20100210, end: 20100211
  20. SULFAMETHOXAZOLE [Concomitant]
     Dosage: 2IUAX PER DAY
     Route: 048
     Dates: start: 20100225
  21. KYTRIL [Concomitant]
     Dosage: 6MG PER DAY
     Dates: start: 20100209, end: 20100314
  22. FRAGMIN [Concomitant]
     Indication: PROPHYLAXIS
     Dosage: 4ML PER DAY
     Route: 042
     Dates: start: 20100209, end: 20100330
  23. ITRACONAZOLE [Concomitant]
     Route: 048
     Dates: start: 20100401
  24. TACROLIMUS [Concomitant]
     Indication: IMMUNOSUPPRESSION
     Dosage: 1.6MG PER DAY
     Dates: start: 20100211
  25. PIPERACILLIN SODIUM [Concomitant]
     Dosage: 4G PER DAY
     Dates: start: 20100209, end: 20100216

REACTIONS (1)
  - HUMAN HERPESVIRUS 6 INFECTION [None]
